FAERS Safety Report 8903658 (Version 1)
Quarter: 2012Q4

REPORT INFORMATION
  Report Type: 
  Country: GB (occurrence: GB)
  Receive Date: 20121112
  Receipt Date: 20121112
  Transmission Date: 20130627
  Serious: Yes (Other)
  Sender: FDA-Public Use
  Company Number: PHHY2012GB103028

PATIENT
  Age: 86 Year
  Sex: Female
  Weight: 111.7 kg

DRUGS (9)
  1. BISOPROLOL [Suspect]
     Indication: CARDIAC FAILURE
     Dosage: 1.25 mg, UNK
     Route: 048
     Dates: start: 20120814, end: 20120815
  2. CO-CODAMOL [Concomitant]
     Indication: PAIN
     Dosage: 2 DF, QID
     Route: 048
  3. LEVEMIR [Concomitant]
     Indication: TYPE 2 DIABETES MELLITUS
     Dosage: 26 IU, BID
     Route: 058
  4. DOXAZOSIN [Concomitant]
     Indication: HYPERTENSION
     Dosage: 2 mg, QD
     Route: 048
  5. WARFARIN [Concomitant]
     Indication: ATRIAL FIBRILLATION
     Dosage: 1mg/2mg
     Route: 048
  6. LISINOPRIL [Concomitant]
     Indication: HYPERTENSION
     Dosage: 25 mg, QD
     Route: 048
  7. FUROSEMIDE [Concomitant]
     Indication: CARDIAC FAILURE
     Dosage: 80 mg, QD
     Route: 048
  8. GLICLAZIDE [Concomitant]
     Indication: TYPE 2 DIABETES MELLITUS
     Dosage: 80 mg, BID
     Route: 048
  9. SIMVASTATIN [Concomitant]
     Indication: HYPERCHOLESTEROLAEMIA
     Dosage: 40 mg, QD
     Route: 048

REACTIONS (3)
  - Circulatory collapse [Unknown]
  - Dyspnoea [Recovering/Resolving]
  - Syncope [Recovering/Resolving]
